FAERS Safety Report 14848833 (Version 1)
Quarter: 2018Q2

REPORT INFORMATION
  Report Type: Spontaneous
  Country: IT (occurrence: IT)
  Receive Date: 20180504
  Receipt Date: 20180504
  Transmission Date: 20180711
  Serious: Yes (Other)
  Sender: FDA-Public Use
  Company Number: IT-SA-2018SA115104

PATIENT
  Sex: Female

DRUGS (1)
  1. FEXALLEGRA [Suspect]
     Active Substance: FEXOFENADINE HYDROCHLORIDE
     Indication: HYPERSENSITIVITY
     Route: 048
     Dates: start: 20180417, end: 20180417

REACTIONS (2)
  - Choking [Unknown]
  - Swollen tongue [Unknown]

NARRATIVE: CASE EVENT DATE: 20180417
